FAERS Safety Report 7288524-3 (Version None)
Quarter: 2011Q1

REPORT INFORMATION
  Report Type: 
  Country: None (occurrence: None)
  Receive Date: 20110211
  Receipt Date: 20110202
  Transmission Date: 20110831
  Serious: Yes (Hospitalization)
  Sender: FDA-Public Use
  Company Number: US-PURDUE-USA-2010-0049142

PATIENT
  Sex: Female
  Weight: 71.655 kg

DRUGS (2)
  1. OXYCODONE HCL [Concomitant]
     Indication: BREAKTHROUGH PAIN
     Dosage: 15 MG, UNK
  2. OXYCONTIN [Suspect]
     Indication: BACK PAIN
     Dosage: 80 MG, TID
     Route: 048
     Dates: start: 20100801

REACTIONS (11)
  - PHOTOPHOBIA [None]
  - NAUSEA [None]
  - FLATULENCE [None]
  - HYPOAESTHESIA FACIAL [None]
  - DRUG INEFFECTIVE [None]
  - GENERAL PHYSICAL HEALTH DETERIORATION [None]
  - MIGRAINE [None]
  - PARAESTHESIA [None]
  - BACK PAIN [None]
  - DRUG HYPERSENSITIVITY [None]
  - DIARRHOEA [None]
